FAERS Safety Report 9499953 (Version 4)
Quarter: 2013Q4

REPORT INFORMATION
  Report Type: Spontaneous
  Country: US (occurrence: US)
  Receive Date: 20130905
  Receipt Date: 20131009
  Transmission Date: 20140711
  Serious: Yes (Other)
  Sender: FDA-Public Use
  Company Number: US-PFIZER INC-2013251955

PATIENT
  Age: 65 Year
  Sex: Male

DRUGS (5)
  1. SUTENT [Suspect]
     Indication: RENAL CANCER
     Dosage: 37.5 MG, CYCLIC (12.5MG, 25MG 4WKS ON 2WKS OFF)
     Dates: start: 20130507
  2. SUTENT [Suspect]
     Indication: MALIGNANT URINARY TRACT NEOPLASM
     Dosage: 37.5 MG, CYCLIC, DAILY X 4 WEEKS THEN 2 WEEKS OFF
     Route: 048
     Dates: start: 20130803, end: 20130806
  3. COZAAR [Concomitant]
     Indication: HYPERTENSION
     Dosage: 100 MG, DAILY
  4. FLOMAX [Concomitant]
     Dosage: 0.4 MG, DAILY
  5. LEVOTHYROXINE [Concomitant]
     Dosage: 75 UG, DAILY

REACTIONS (4)
  - Renal failure [Unknown]
  - Blood creatinine increased [Unknown]
  - Nephropathy [Unknown]
  - Hypovolaemia [Recovered/Resolved]
